FAERS Safety Report 22109551 (Version 4)
Quarter: 2023Q2

REPORT INFORMATION
  Report Type: Spontaneous
  Country: US (occurrence: US)
  Receive Date: 20230317
  Receipt Date: 20230622
  Transmission Date: 20230722
  Serious: Yes (Hospitalization, Other)
  Sender: FDA-Public Use
  Company Number: US-PFIZER INC-202300112410

PATIENT
  Age: 68 Year
  Sex: Female
  Weight: 54.43 kg

DRUGS (8)
  1. DEPO-ESTRADIOL [Suspect]
     Active Substance: ESTRADIOL CYPIONATE
     Indication: Hot flush
     Dosage: UNK (8/10 OF AN ML )
     Dates: start: 20050205
  2. DEPO-ESTRADIOL [Suspect]
     Active Substance: ESTRADIOL CYPIONATE
     Indication: Menopausal symptoms
     Dosage: UNK (3/10 OF AN ML DEEP INTRAMUSCULAR INJECTION TWICE A MONTH)
     Route: 030
     Dates: start: 2005
  3. DEPO-ESTRADIOL [Suspect]
     Active Substance: ESTRADIOL CYPIONATE
     Dosage: UNK (1ST INJECTION: 21NOV2022: LEFT THIGH)
     Dates: start: 20221121
  4. DEPO-ESTRADIOL [Suspect]
     Active Substance: ESTRADIOL CYPIONATE
     Dosage: UNK (2ND INJECTION: RIGHT THIGH)
  5. DEPO-ESTRADIOL [Suspect]
     Active Substance: ESTRADIOL CYPIONATE
     Dosage: UNK (3RD INJECTION: LEFT THIGH)
  6. DEPO-ESTRADIOL [Suspect]
     Active Substance: ESTRADIOL CYPIONATE
     Dosage: UNK (4TH INJECTION: RIGHT THIGH)
  7. DEPO-ESTRADIOL [Suspect]
     Active Substance: ESTRADIOL CYPIONATE
     Dosage: UNK (5TH INJECTION: LEFT THIGH)
  8. LOTREL [Concomitant]
     Active Substance: AMLODIPINE BESYLATE\BENAZEPRIL HYDROCHLORIDE
     Indication: Hypertension
     Dosage: UNK

REACTIONS (11)
  - Loss of consciousness [Unknown]
  - Head injury [Unknown]
  - Enteritis [Unknown]
  - Presyncope [Unknown]
  - Concussion [Unknown]
  - Wound [Unknown]
  - Haemorrhage [Unknown]
  - Poor quality product administered [Unknown]
  - Product quality issue [Unknown]
  - Injection site erythema [Unknown]
  - Off label use [Unknown]

NARRATIVE: CASE EVENT DATE: 20050205
